FAERS Safety Report 13274167 (Version 7)
Quarter: 2017Q3

REPORT INFORMATION
  Report Type: Report from Study
  Country: ES (occurrence: ES)
  Receive Date: 20170227
  Receipt Date: 20170804
  Transmission Date: 20171127
  Serious: Yes (Hospitalization, Other)
  Sender: FDA-Public Use
  Company Number: ES-JNJFOC-20170224915

PATIENT
  Age: 80 Year
  Sex: Male

DRUGS (26)
  1. KREON [Concomitant]
     Active Substance: PANCRELIPASE
     Indication: PRODUCT USED FOR UNKNOWN INDICATION
     Dosage: DOSE: 25000
     Route: 065
     Dates: start: 20170221
  2. PARAPRESS [Concomitant]
     Indication: PRODUCT USED FOR UNKNOWN INDICATION
     Route: 065
  3. AMOXICILINA + CLAVULANICO [Concomitant]
     Active Substance: AMOXICILLIN\CLAVULANIC ACID
     Indication: ADVERSE EVENT
     Dosage: 825/175 MG X 3
     Route: 065
     Dates: start: 20170227, end: 20170303
  4. KREON [Concomitant]
     Active Substance: PANCRELIPASE
     Indication: PRODUCT USED FOR UNKNOWN INDICATION
     Route: 065
     Dates: start: 20170321
  5. LORMETAZEPAM [Concomitant]
     Active Substance: LORMETAZEPAM
     Indication: PRODUCT USED FOR UNKNOWN INDICATION
     Route: 065
  6. XARELTO [Suspect]
     Active Substance: RIVAROXABAN
     Indication: THROMBOSIS PROPHYLAXIS
     Route: 048
     Dates: start: 20170227, end: 20170321
  7. PANTOPRAZOLE [Concomitant]
     Active Substance: PANTOPRAZOLE
     Indication: PRODUCT USED FOR UNKNOWN INDICATION
     Route: 065
  8. LEVOFLOXACIN. [Concomitant]
     Active Substance: LEVOFLOXACIN
     Indication: ADVERSE EVENT
     Route: 065
     Dates: start: 20170227, end: 20170303
  9. PIPERACILLIN AND TAZOBACTAM [Concomitant]
     Active Substance: PIPERACILLIN SODIUM\TAZOBACTAM SODIUM
     Indication: ADVERSE EVENT
     Dosage: 4 GR / 500 MG
     Route: 065
     Dates: start: 20170404
  10. POTASSIUM CHLORIDE. [Concomitant]
     Active Substance: POTASSIUM CHLORIDE
     Indication: ADVERSE EVENT
     Route: 065
     Dates: start: 20170222, end: 20170227
  11. XARELTO [Suspect]
     Active Substance: RIVAROXABAN
     Indication: EMBOLISM VENOUS
     Route: 048
     Dates: start: 20161222, end: 20170221
  12. BESITRAN [Concomitant]
     Active Substance: SERTRALINE HYDROCHLORIDE
     Indication: PRODUCT USED FOR UNKNOWN INDICATION
     Route: 065
  13. BOREA [Concomitant]
     Active Substance: MEGESTROL ACETATE
     Indication: ADVERSE EVENT
     Route: 065
     Dates: start: 20170321
  14. QUETIAPINE. [Concomitant]
     Active Substance: QUETIAPINE
     Indication: ADVERSE EVENT
     Route: 065
     Dates: start: 20170403
  15. XARELTO [Suspect]
     Active Substance: RIVAROXABAN
     Indication: THROMBOSIS PROPHYLAXIS
     Route: 048
     Dates: start: 20161222, end: 20170221
  16. KREON [Concomitant]
     Active Substance: PANCRELIPASE
     Indication: ADVERSE EVENT
     Dosage: DOSE: 25000
     Route: 065
     Dates: start: 20170221
  17. METAMIZOLE [Concomitant]
     Active Substance: METAMIZOLE
     Indication: ADVERSE EVENT
     Dosage: 3 AMPULES
     Route: 065
     Dates: start: 20170321
  18. FORTASEC [Concomitant]
     Active Substance: LOPERAMIDE HYDROCHLORIDE
     Indication: ADVERSE EVENT
     Route: 065
     Dates: start: 20170321
  19. XARELTO [Suspect]
     Active Substance: RIVAROXABAN
     Indication: THROMBOSIS PROPHYLAXIS
     Route: 048
     Dates: start: 20170401, end: 20170403
  20. PIPERACILLIN [Concomitant]
     Active Substance: PIPERACILLIN
     Indication: ADVERSE EVENT
     Dosage: 4 GR/500MG
     Route: 065
     Dates: start: 20170321
  21. TRAZODONE [Concomitant]
     Active Substance: TRAZODONE HYDROCHLORIDE
     Indication: PRODUCT USED FOR UNKNOWN INDICATION
     Route: 065
     Dates: start: 20170401
  22. XARELTO [Suspect]
     Active Substance: RIVAROXABAN
     Indication: EMBOLISM VENOUS
     Route: 048
     Dates: start: 20170401, end: 20170403
  23. XARELTO [Suspect]
     Active Substance: RIVAROXABAN
     Indication: EMBOLISM VENOUS
     Route: 048
     Dates: start: 20170227, end: 20170321
  24. KREON [Concomitant]
     Active Substance: PANCRELIPASE
     Indication: ADVERSE EVENT
     Route: 065
     Dates: start: 20170321
  25. SERTRALINE [Concomitant]
     Active Substance: SERTRALINE HYDROCHLORIDE
     Indication: PRODUCT USED FOR UNKNOWN INDICATION
     Route: 065
     Dates: start: 20170226
  26. DEXKETOPROFEN [Concomitant]
     Active Substance: DEXKETOPROFEN
     Indication: ADVERSE EVENT
     Route: 065
     Dates: start: 20170325

REACTIONS (10)
  - Cholangitis [Recovering/Resolving]
  - Dizziness [Recovered/Resolved]
  - Device related sepsis [Recovering/Resolving]
  - Biliary sepsis [Recovered/Resolved]
  - Febrile infection [Recovered/Resolved]
  - Urosepsis [Recovering/Resolving]
  - Urinary tract infection [Recovered/Resolved]
  - Abdominal pain [Recovering/Resolving]
  - Urinary tract infection [Recovered/Resolved]
  - Peripheral sensorimotor neuropathy [Recovered/Resolved]

NARRATIVE: CASE EVENT DATE: 20170221
